FAERS Safety Report 24791826 (Version 1)
Quarter: 2024Q4

REPORT INFORMATION
  Report Type: Spontaneous
  Country: CN (occurrence: CN)
  Receive Date: 20241231
  Receipt Date: 20241231
  Transmission Date: 20250115
  Serious: Yes (Other)
  Sender: NOVARTIS
  Company Number: CN-002147023-NVSC2024CN244752

PATIENT
  Age: 64 Year
  Sex: Female

DRUGS (1)
  1. SACUBITRIL\VALSARTAN [Suspect]
     Active Substance: SACUBITRIL\VALSARTAN
     Indication: Cardiac failure
     Dosage: 50 MG, BID
     Route: 065
     Dates: start: 20240928, end: 20241125

REACTIONS (10)
  - Renal impairment [Recovering/Resolving]
  - Hypertension [Unknown]
  - Cardiac failure chronic [Unknown]
  - Arteriosclerosis coronary artery [Unknown]
  - Atrial fibrillation [Unknown]
  - Myocardial infarction [Unknown]
  - Cardiac dysfunction [Unknown]
  - Type 2 diabetes mellitus [Unknown]
  - Cardiomegaly [Unknown]
  - Renal cyst [Unknown]

NARRATIVE: CASE EVENT DATE: 20241125
